FAERS Safety Report 15888303 (Version 1)
Quarter: 2019Q1

REPORT INFORMATION
  Report Type: Spontaneous
  Country: US (occurrence: US)
  Receive Date: 20190108
  Receipt Date: 20190108
  Transmission Date: 20190417
  Serious: Yes (Hospitalization)
  Sender: FDA-Public Use
  Company Number: None

PATIENT

DRUGS (1)
  1. CONTRAVE [Suspect]
     Active Substance: BUPROPION HYDROCHLORIDE\NALTREXONE HYDROCHLORIDE
     Indication: WEIGHT DECREASED
     Dosage: 2 PILLS 9 AM ?2 PILLS 9 PM  TUESDAY  PILL FORM - SWALLAWED
     Dates: start: 20181111, end: 20181210

REACTIONS (3)
  - Abdominal pain [None]
  - Abdominal pain upper [None]
  - Dysstasia [None]

NARRATIVE: CASE EVENT DATE: 20181210
